FAERS Safety Report 20101153 (Version 1)
Quarter: 2021Q4

REPORT INFORMATION
  Report Type: Spontaneous
  Country: US (occurrence: None)
  Receive Date: 20211122
  Receipt Date: 20211122
  Transmission Date: 20220303
  Serious: Yes (Other)
  Sender: FDA-Public Use
  Company Number: None

PATIENT
  Age: 57 Year
  Sex: Male
  Weight: 107.55 kg

DRUGS (1)
  1. BAMLANIVIMAB\ETESEVIMAB [Suspect]
     Active Substance: BAMLANIVIMAB\ETESEVIMAB
     Indication: COVID-19
     Dosage: OTHER FREQUENCY : ONCE;?
     Route: 041
     Dates: start: 20211122, end: 20211122

REACTIONS (7)
  - Syncope [None]
  - Feeling cold [None]
  - Hyperhidrosis [None]
  - Vision blurred [None]
  - Visual impairment [None]
  - Dehydration [None]
  - Infusion related reaction [None]

NARRATIVE: CASE EVENT DATE: 20211122
